FAERS Safety Report 11167146 (Version 1)
Quarter: 2015Q2

REPORT INFORMATION
  Report Type: Report from Study
  Country: AT (occurrence: None)
  Receive Date: 20150603
  Receipt Date: 20150603
  Transmission Date: 20150821
  Serious: Yes (Hospitalization)
  Sender: FDA-Public Use
  Company Number: 2015DEPAT00618

PATIENT
  Age: 9 Year
  Sex: Female
  Weight: 24 kg

DRUGS (8)
  1. CELECOXIB. [Concomitant]
     Active Substance: CELECOXIB
  2. CIPROXIN (CIPROFLOXACIN HYDROCHLORIDE) (FILM-COATED TABLET) (CIPROFLOXACIN HYDROCHLORIDE) [Concomitant]
     Active Substance: CIPROFLOXACIN
  3. DEPOCYT(E) (CYTARABINE) LIPOSOME INJECTABLE SUSPENSION [Suspect]
     Active Substance: CYTARABINE
     Indication: MEDULLOBLASTOMA
     Dosage: 35 MG, EVERY 4 WEEKS
     Route: 018
     Dates: start: 20140826, end: 20141216
  4. EUTHYROX (LEVOTHYROXINE SODIUM) [Concomitant]
  5. FENOFIBRATE. [Concomitant]
     Active Substance: FENOFIBRATE
  6. THALIDOMIDE [Concomitant]
     Active Substance: THALIDOMIDE
  7. EUSAPRIM (SULFAMETHOXAZOLE, TRIMETHOPRIM) [Concomitant]
  8. ETOPOSIDE (ETOPOSIDE PHOSPHATE) [Concomitant]
     Active Substance: ETOPOSIDE

REACTIONS (2)
  - Hyponatraemia [None]
  - Seizure [None]

NARRATIVE: CASE EVENT DATE: 20150107
